FAERS Safety Report 6243671-X (Version None)
Quarter: 2009Q2

REPORT INFORMATION
  Report Type: 
  Country: None (occurrence: None)
  Receive Date: 20090624
  Receipt Date: 20090618
  Transmission Date: 20091009
  Serious: Yes (Congenital Anomaly)
  Sender: FDA-Public Use
  Company Number: NL-WYE-G03883309

PATIENT
  Sex: Male

DRUGS (2)
  1. EFFEXOR XR [Suspect]
     Indication: DEPRESSION
     Dosage: USED DURING COMPLETE PREGNANCY
     Route: 064
  2. METHYLDOPA [Concomitant]

REACTIONS (5)
  - DRUG EXPOSURE DURING PREGNANCY [None]
  - FEEDING DISORDER NEONATAL [None]
  - HYPOVENTILATION NEONATAL [None]
  - OXYGEN SATURATION DECREASED [None]
  - VOMITING NEONATAL [None]
